FAERS Safety Report 11611866 (Version 1)
Quarter: 2015Q4

REPORT INFORMATION
  Report Type: Spontaneous
  Country: BE (occurrence: BE)
  Receive Date: 20151008
  Receipt Date: 20151008
  Transmission Date: 20160304
  Serious: Yes (Life-Threatening)
  Sender: FDA-Public Use
  Company Number: BE-PFIZER INC-2015331813

PATIENT
  Age: 25 Year
  Sex: Male
  Weight: 70 kg

DRUGS (2)
  1. EFFEXOR XR [Suspect]
     Active Substance: VENLAFAXINE HYDROCHLORIDE
     Dosage: 300 MG, 1X/DAY
     Route: 048
     Dates: start: 2011, end: 2013
  2. SOLIAN [Concomitant]
     Active Substance: AMISULPRIDE
     Dosage: 200 MG, 2X/DAY
     Route: 048
     Dates: start: 2011, end: 2013

REACTIONS (13)
  - Cognitive disorder [Recovering/Resolving]
  - Derealisation [Recovering/Resolving]
  - Agitation [Recovering/Resolving]
  - Anhedonia [Recovering/Resolving]
  - Depersonalisation [Recovering/Resolving]
  - Pain [Recovering/Resolving]
  - Depression [Recovering/Resolving]
  - Physical disability [Recovering/Resolving]
  - Mental disability [Recovering/Resolving]
  - Fear [Recovering/Resolving]
  - Sensory disturbance [Recovering/Resolving]
  - Irritability [Recovering/Resolving]
  - Stress [Recovering/Resolving]

NARRATIVE: CASE EVENT DATE: 20130620
